FAERS Safety Report 7483450-9 (Version None)
Quarter: 2011Q2

REPORT INFORMATION
  Report Type: 
  Country: None (occurrence: None)
  Receive Date: 20110509
  Receipt Date: 20110425
  Transmission Date: 20111010
  Serious: Yes (Hospitalization)
  Sender: FDA-Public Use
  Company Number: PIR#1104057

PATIENT
  Age: 60 Year
  Sex: Female

DRUGS (1)
  1. CEFUROXIME [Suspect]

REACTIONS (4)
  - BILIRUBIN CONJUGATED INCREASED [None]
  - OCULAR ICTERUS [None]
  - JAUNDICE [None]
  - BLOOD BILIRUBIN INCREASED [None]
